FAERS Safety Report 22088019 (Version 1)
Quarter: 2023Q1

REPORT INFORMATION
  Report Type: Report from Study
  Country: US (occurrence: None)
  Receive Date: 20230313
  Receipt Date: 20230313
  Transmission Date: 20230417
  Serious: Yes (Death)
  Sender: FDA-Public Use
  Company Number: US-ROCHE-3305653

PATIENT

DRUGS (1)
  1. VENETOCLAX [Suspect]
     Active Substance: VENETOCLAX
     Indication: Acute myeloid leukaemia
     Dosage: LAST DOSE ADMINISTERED ON 04/OCT/2022,  ON DAYS 1-28 OF CYCLE 1 (MAY BE REDUCED TO DAYS 1-21 FOR SUB
     Route: 048
     Dates: start: 20220810

REACTIONS (1)
  - Death [Fatal]
